FAERS Safety Report 24948464 (Version 2)
Quarter: 2025Q2

REPORT INFORMATION
  Report Type: Other
  Country: US (occurrence: US)
  Receive Date: 20250210
  Receipt Date: 20250429
  Transmission Date: 20250717
  Serious: No
  Sender: TRAVERE THERAPEUTICS
  Company Number: US-TRAVERE-2025TVT00154

PATIENT
  Age: 43 Year
  Sex: Male

DRUGS (1)
  1. FILSPARI [Suspect]
     Active Substance: SPARSENTAN
     Indication: IgA nephropathy
     Route: 048
     Dates: start: 20250125

REACTIONS (4)
  - Hypotension [None]
  - Alanine aminotransferase increased [Unknown]
  - Loss of consciousness [Unknown]
  - Dizziness [Unknown]
